FAERS Safety Report 7094534-1 (Version None)
Quarter: 2010Q4

REPORT INFORMATION
  Report Type: 
  Country: None (occurrence: None)
  Receive Date: 20101110
  Receipt Date: 20101102
  Transmission Date: 20110411
  Serious: Yes (Other)
  Sender: FDA-Public Use
  Company Number: JP-AMGEN-JPNCT2010003781

PATIENT

DRUGS (1)
  1. PANITUMUMAB [Suspect]
     Dosage: 300 MG, Q2WK
     Route: 041
     Dates: start: 20100712

REACTIONS (1)
  - INTESTINAL OBSTRUCTION [None]
